FAERS Safety Report 7249431-5 (Version None)
Quarter: 2011Q1

REPORT INFORMATION
  Report Type: 
  Country: None (occurrence: None)
  Receive Date: 20110128
  Receipt Date: 20101220
  Transmission Date: 20110831
  Serious: Yes (Hospitalization)
  Sender: FDA-Public Use
  Company Number: IT-BAYER-201047743GPV

PATIENT
  Sex: Male

DRUGS (1)
  1. CIPROXIN [Suspect]
     Indication: ANTIBIOTIC PROPHYLAXIS
     Dosage: 1 G (DAILY DOSE), , ORAL
     Route: 048
     Dates: start: 20100920, end: 20100922

REACTIONS (2)
  - VERTIGO [None]
  - MALAISE [None]
